FAERS Safety Report 6349317-4 (Version None)
Quarter: 2009Q3

REPORT INFORMATION
  Report Type: 
  Country: None (occurrence: None)
  Receive Date: 20090911
  Receipt Date: 20090903
  Transmission Date: 20100115
  Serious: Yes (Other)
  Sender: FDA-Public Use
  Company Number: B0591286A

PATIENT
  Sex: Female

DRUGS (8)
  1. AUGMENTIN '125' [Suspect]
     Dosage: 1G THREE TIMES PER DAY
     Route: 048
     Dates: start: 20090529, end: 20090614
  2. SORIATANE [Suspect]
     Dosage: 10MG PER DAY
     Route: 048
     Dates: start: 20090508, end: 20090706
  3. LIPANTHYL [Concomitant]
     Dosage: 67MG PER DAY
     Dates: end: 20090706
  4. INEXIUM [Concomitant]
     Dosage: 20MG PER DAY
     Dates: end: 20090706
  5. BETNEVAL [Concomitant]
     Dates: start: 20090528, end: 20090706
  6. ATARAX [Concomitant]
     Dosage: 25MG PER DAY
     Dates: start: 20090528, end: 20090706
  7. EFFERALGAN [Concomitant]
     Indication: PAIN
     Dosage: 1G AS REQUIRED
     Dates: start: 20090501, end: 20090706
  8. FUMAFER [Concomitant]
     Dates: start: 20090529, end: 20090706

REACTIONS (6)
  - CHROMATURIA [None]
  - FAECES DISCOLOURED [None]
  - HEPATITIS [None]
  - HYPERBILIRUBINAEMIA [None]
  - JAUNDICE [None]
  - MIXED LIVER INJURY [None]
